FAERS Safety Report 23499691 (Version 1)
Quarter: 2024Q1

REPORT INFORMATION
  Report Type: Spontaneous
  Country: IT (occurrence: IT)
  Receive Date: 20240208
  Receipt Date: 20240208
  Transmission Date: 20240409
  Serious: Yes (Other)
  Sender: FDA-Public Use
  Company Number: None

PATIENT
  Age: 63 Year
  Sex: Male

DRUGS (2)
  1. CAPECITABINE [Suspect]
     Active Substance: CAPECITABINE
     Indication: Colon cancer
     Dosage: START OF THERAPY 09/27/2023 FOR 14 DAYS (UNTIL 11/10), EVERY 21 DAYS - 1ST CYCLE - 3 TABLETS OF 5...
     Route: 048
     Dates: start: 20231018, end: 20231101
  2. ELOXATIN [Suspect]
     Active Substance: OXALIPLATIN
     Indication: Colon cancer
     Dosage: START OF THERAPY 09/27/2023 - 1ST CYCLE - THERAPY EVERY 21 DAYS
     Route: 042
     Dates: start: 20231017, end: 20231017

REACTIONS (4)
  - Neutropenia [Recovering/Resolving]
  - Thrombocytopenia [Recovering/Resolving]
  - Neuropathy peripheral [Recovering/Resolving]
  - Leukopenia [Recovering/Resolving]

NARRATIVE: CASE EVENT DATE: 20230929
